FAERS Safety Report 22188299 (Version 2)
Quarter: 2023Q2

REPORT INFORMATION
  Report Type: Spontaneous
  Country: RU (occurrence: RU)
  Receive Date: 20230408
  Receipt Date: 20230424
  Transmission Date: 20230722
  Serious: Yes (Other)
  Sender: FDA-Public Use
  Company Number: RU-drreddys-LIT/RUS/23/0163276

PATIENT
  Age: 42 Year
  Sex: Female
  Weight: 60 kg

DRUGS (3)
  1. CETIRIZINE [Suspect]
     Active Substance: CETIRIZINE HYDROCHLORIDE
     Indication: Urticarial vasculitis
     Dates: start: 202105
  2. DEVICE [Suspect]
     Active Substance: DEVICE
     Indication: Urticarial vasculitis
     Dates: start: 202105
  3. LEVOTHYROXINE SODIUM [Concomitant]
     Active Substance: LEVOTHYROXINE SODIUM
     Indication: Autoimmune hypothyroidism
     Dosage: DRUG-INDUCED EUTHYROIDISM WAS ACHIEVED

REACTIONS (6)
  - ASIA syndrome [Unknown]
  - Systemic lupus erythematosus [Unknown]
  - Urticarial vasculitis [Unknown]
  - Drug ineffective for unapproved indication [Unknown]
  - Chronic fatigue syndrome [Unknown]
  - Sarcoid-like reaction [Unknown]
